FAERS Safety Report 7060457-7 (Version None)
Quarter: 2010Q4

REPORT INFORMATION
  Report Type: 
  Country: None (occurrence: None)
  Receive Date: 20101025
  Receipt Date: 20101019
  Transmission Date: 20110411
  Serious: Yes (Hospitalization)
  Sender: FDA-Public Use
  Company Number: DE-PFIZER INC-2006001496

PATIENT
  Age: 60 Year
  Sex: Female
  Weight: 77.8 kg

DRUGS (10)
  1. SUNITINIB MALATE [Suspect]
     Indication: METASTATIC RENAL CELL CARCINOMA
     Dosage: 50 MG, 1X/DAY
     Route: 048
     Dates: start: 20051212, end: 20051229
  2. SUNITINIB MALATE [Suspect]
     Dosage: 37.5 MG, 1X/DAY
     Route: 048
     Dates: start: 20060123
  3. AMITRIPTYLINE HCL [Suspect]
     Indication: ILL-DEFINED DISORDER
     Dosage: 25 MG, 1X/DAY
     Route: 048
     Dates: start: 20051101, end: 20051230
  4. DELMUNO [Concomitant]
     Dosage: UNK
     Route: 048
     Dates: start: 20040101
  5. EUTHYROX [Concomitant]
     Dosage: UNK
     Route: 048
     Dates: start: 20020101
  6. ARANESP [Concomitant]
     Dosage: UNK
     Route: 058
     Dates: start: 20050801, end: 20051221
  7. ETORICOXIB [Concomitant]
     Dosage: UNK
     Route: 048
     Dates: start: 20051201
  8. XIPAMIDE [Concomitant]
     Dosage: UNK
     Route: 048
     Dates: start: 20031101
  9. MOLSIDOMINE [Concomitant]
     Dosage: UNK
     Route: 048
     Dates: start: 20031101
  10. ZINC SULFATE [Concomitant]
     Dosage: UNK
     Route: 048
     Dates: start: 20050801, end: 20051201

REACTIONS (3)
  - DIARRHOEA [None]
  - LEUKOPENIA [None]
  - PYREXIA [None]
